FAERS Safety Report 21327653 (Version 2)
Quarter: 2022Q3

REPORT INFORMATION
  Report Type: Spontaneous
  Country: MY (occurrence: MY)
  Receive Date: 20220913
  Receipt Date: 20220924
  Transmission Date: 20221026
  Serious: Yes (Death, Life-Threatening, Hospitalization, Other)
  Sender: FDA-Public Use
  Company Number: MY-Accord-277556

PATIENT
  Age: 33 Year
  Sex: Male

DRUGS (6)
  1. MYCOPHENOLATE MOFETIL [Suspect]
     Active Substance: MYCOPHENOLATE MOFETIL
     Indication: Immunosuppressant drug therapy
     Dosage: TAB. MYCOPHENOLATE MOFETIL (750 MG BD)
  2. CYCLOPHOSPHAMIDE [Suspect]
     Active Substance: CYCLOPHOSPHAMIDE
     Indication: Bone marrow conditioning regimen
     Route: 042
  3. PREDNISOLONE [Suspect]
     Active Substance: PREDNISOLONE
     Indication: Immunosuppressant drug therapy
     Dosage: TAB. PREDNISOLONE (10 MG OD)
  4. ACYCLOVIR [Concomitant]
     Active Substance: ACYCLOVIR
     Dosage: TAB. ACICLOVIR (800 MG BD)
  5. SULFAMETHOXAZOLE\TRIMETHOPRIM [Concomitant]
     Active Substance: SULFAMETHOXAZOLE\TRIMETHOPRIM
     Dosage: TAB. BACTRIM (11/11 BD 2 X /WEEK)
  6. ITRACONAZOLE [Concomitant]
     Active Substance: ITRACONAZOLE
     Dosage: TAB. ITRACONAZOLE (100 MG OD)

REACTIONS (1)
  - Squamous cell carcinoma of the oral cavity [Fatal]
